FAERS Safety Report 5432219-5 (Version None)
Quarter: 2007Q3

REPORT INFORMATION
  Report Type: 
  Country: None (occurrence: None)
  Receive Date: 20070830
  Receipt Date: 20070823
  Transmission Date: 20080115
  Serious: Yes (Other)
  Sender: FDA-Public Use
  Company Number: US-GILEAD-2007-0013157

PATIENT
  Sex: Female
  Weight: 50.576 kg

DRUGS (16)
  1. LETAIRIS [Suspect]
     Indication: PULMONARY HYPERTENSION
     Route: 048
     Dates: start: 20070808, end: 20070808
  2. LETAIRIS [Suspect]
     Route: 048
     Dates: start: 20070725, end: 20070728
  3. SPIRONOLACTONE [Concomitant]
     Indication: CARDIAC FAILURE CONGESTIVE
     Route: 048
  4. SPIRONOLACTONE [Concomitant]
     Indication: OEDEMA
  5. GABAPENTIN [Concomitant]
     Indication: PAIN IN EXTREMITY
     Route: 048
  6. BOMEX [Concomitant]
     Indication: OEDEMA
     Route: 048
  7. BOMEX [Concomitant]
     Indication: CARDIAC FAILURE CHRONIC
  8. COUMADIN [Concomitant]
     Indication: PULMONARY HYPERTENSION
     Route: 048
  9. COUMADIN [Concomitant]
     Indication: DEEP VEIN THROMBOSIS
  10. LEVOTHYROXINE SODIUM [Concomitant]
     Indication: HYPOTHYROIDISM
     Route: 048
  11. DIGITEK [Concomitant]
     Indication: CARDIAC FAILURE CONGESTIVE
     Route: 048
  12. FERROUS SULFATE TAB [Concomitant]
     Indication: ANAEMIA
     Route: 048
  13. MINOCYCLINE HCL [Concomitant]
     Indication: EYE INFECTION
     Route: 048
  14. CARTIA XT [Concomitant]
     Indication: HYPERTENSION
  15. CARTIA XT [Concomitant]
     Indication: PULMONARY HYPERTENSION
  16. VITAMIN [Concomitant]
     Indication: MEDICAL DIET

REACTIONS (3)
  - FATIGUE [None]
  - NAUSEA [None]
  - PAIN IN EXTREMITY [None]
